FAERS Safety Report 17976808 (Version 2)
Quarter: 2020Q4

REPORT INFORMATION
  Report Type: Spontaneous
  Country: US (occurrence: US)
  Receive Date: 20200702
  Receipt Date: 20201119
  Transmission Date: 20210113
  Serious: Yes (Other)
  Sender: FDA-Public Use
  Company Number: US-PURDUE-USA-2020-0151750

PATIENT
  Age: 52 Year
  Sex: Male

DRUGS (6)
  1. OXYCODONE HYDROCHLORIDE (SIMILAR TO NDA 22-272) [Suspect]
     Active Substance: OXYCODONE HYDROCHLORIDE
     Indication: INJURY
     Dosage: 5/325, MG
     Route: 048
  2. IBUPROFEN. [Concomitant]
     Active Substance: IBUPROFEN
     Indication: PAIN
     Dosage: UNKNOWN
     Route: 048
  3. OXYCONTIN [Suspect]
     Active Substance: OXYCODONE HYDROCHLORIDE
     Indication: PRODUCT USED FOR UNKNOWN INDICATION
     Dosage: 40 MG, UNK
     Route: 048
  4. PERCOCET                           /00446701/ [Suspect]
     Active Substance: ACETAMINOPHEN\OXYCODONE HYDROCHLORIDE\OXYCODONE TEREPHTHALATE
     Indication: INJURY
     Dosage: 10/325, MG
     Route: 065
  5. OPANA [Suspect]
     Active Substance: OXYMORPHONE HYDROCHLORIDE
     Indication: PRODUCT USED FOR UNKNOWN INDICATION
     Dosage: 40 MG, UNK
     Route: 065
  6. ENDOCET [Suspect]
     Active Substance: ACETAMINOPHEN\OXYCODONE HYDROCHLORIDE
     Indication: INJURY
     Dosage: 10/325, MG
     Route: 065

REACTIONS (14)
  - Drug ineffective [Not Recovered/Not Resolved]
  - Emotional distress [Unknown]
  - Abdominal discomfort [Unknown]
  - Joint noise [Unknown]
  - Traumatic arthritis [Unknown]
  - Pain [Unknown]
  - Pruritus [Unknown]
  - Restlessness [Unknown]
  - Drug dependence [Not Recovered/Not Resolved]
  - Delirium [Unknown]
  - Joint stiffness [Unknown]
  - Mood swings [Unknown]
  - Chondromatosis [Unknown]
  - Tremor [Unknown]

NARRATIVE: CASE EVENT DATE: 2007
